FAERS Safety Report 7562855-1 (Version None)
Quarter: 2011Q2

REPORT INFORMATION
  Report Type: 
  Country: None (occurrence: None)
  Receive Date: 20110622
  Receipt Date: 20110610
  Transmission Date: 20111010
  Serious: Yes (Other)
  Sender: FDA-Public Use
  Company Number: US-ROCHE-765400

PATIENT
  Sex: Female
  Weight: 54.4 kg

DRUGS (4)
  1. ACCUTANE [Suspect]
     Route: 065
     Dates: start: 20020326
  2. ACCUTANE [Suspect]
     Route: 065
     Dates: start: 20020423
  3. ACCUTANE [Suspect]
     Indication: ACNE
     Dosage: STRENGTH: 40 MG AND 20 MG
     Route: 065
     Dates: start: 20020212
  4. ACCUTANE [Suspect]
     Route: 065
     Dates: start: 20020619, end: 20020630

REACTIONS (8)
  - ABDOMINAL PAIN [None]
  - PROCTITIS ULCERATIVE [None]
  - ANXIETY [None]
  - DIARRHOEA [None]
  - FREQUENT BOWEL MOVEMENTS [None]
  - INFLAMMATORY BOWEL DISEASE [None]
  - RECTAL HAEMORRHAGE [None]
  - DRY SKIN [None]
